FAERS Safety Report 6597143-3 (Version None)
Quarter: 2010Q1

REPORT INFORMATION
  Report Type: 
  Country: None (occurrence: None)
  Receive Date: 20100223
  Receipt Date: 20100210
  Transmission Date: 20100710
  Serious: Yes (Death, Life-Threatening, Other)
  Sender: FDA-Public Use
  Company Number: CA-ROCHE-603778

PATIENT
  Sex: Female

DRUGS (6)
  1. PEG-INTERFERON ALFA 2A (RO 25-8310) [Suspect]
     Indication: HEPATITIS C
     Route: 058
     Dates: start: 20080902, end: 20081201
  2. RIBAVIRIN [Suspect]
     Indication: HEPATITIS C
     Route: 048
     Dates: start: 20080902, end: 20081201
  3. ALCOHOL [Interacting]
     Indication: DRUG USE FOR UNKNOWN INDICATION
     Route: 065
  4. EPREX [Interacting]
     Route: 058
     Dates: start: 20081110
  5. IBUPROFEN [Concomitant]
     Route: 048
     Dates: start: 20080902, end: 20081201
  6. ATIVAN [Concomitant]
     Indication: ANXIETY
     Route: 048
     Dates: start: 20080902, end: 20081201

REACTIONS (7)
  - ALCOHOL INTERACTION [None]
  - ALCOHOL POISONING [None]
  - BRAIN INJURY [None]
  - CARDIAC ARREST [None]
  - MYOCARDIAL INFARCTION [None]
  - PANCYTOPENIA [None]
  - VENTRICULAR FIBRILLATION [None]
